FAERS Safety Report 9681870 (Version 3)
Quarter: 2013Q4

REPORT INFORMATION
  Report Type: Spontaneous
  Country: US (occurrence: US)
  Receive Date: 20131111
  Receipt Date: 20131120
  Transmission Date: 20140711
  Serious: Yes (Other)
  Sender: FDA-Public Use
  Company Number: US-PFIZER INC-2013320824

PATIENT
  Age: 51 Year
  Sex: Female
  Weight: 61.68 kg

DRUGS (5)
  1. LYRICA [Suspect]
     Indication: ANXIETY
     Dosage: 75 MG, DAILY
     Dates: start: 201304, end: 2013
  2. LYRICA [Suspect]
     Indication: DEPRESSION
     Dosage: 50 MG, 2X/DAY
     Dates: start: 20131108
  3. LYRICA [Suspect]
     Indication: PSORIATIC ARTHROPATHY
  4. LEXAPRO [Suspect]
     Indication: ANXIETY
     Dosage: UNK
  5. LEXAPRO [Suspect]
     Indication: DEPRESSION

REACTIONS (11)
  - Off label use [Unknown]
  - Heart rate increased [Unknown]
  - Palpitations [Unknown]
  - Dyspnoea [Unknown]
  - Panic attack [Unknown]
  - Chest discomfort [Unknown]
  - Anxiety [Unknown]
  - Depression [Unknown]
  - Vision blurred [Unknown]
  - Myalgia [Unknown]
  - Feeling hot [Unknown]
